FAERS Safety Report 7201926-6 (Version None)
Quarter: 2010Q4

REPORT INFORMATION
  Report Type: 
  Country: None (occurrence: None)
  Receive Date: 20101229
  Receipt Date: 20101222
  Transmission Date: 20110411
  Serious: Yes (Hospitalization, Other)
  Sender: FDA-Public Use
  Company Number: FR-PFIZER INC-2010177031

PATIENT
  Age: 29 Year
  Sex: Female

DRUGS (3)
  1. SALAZOPYRINE [Suspect]
     Indication: BACK PAIN
     Dosage: 1000 MG, 2X/DAY
     Route: 048
     Dates: start: 20101107, end: 20101120
  2. SPECIAFOLDINE [Suspect]
     Indication: BACK PAIN
     Dosage: UNK
     Route: 048
     Dates: start: 20101107, end: 20101120
  3. TOPIRAMATE [Concomitant]
     Dosage: UNK

REACTIONS (7)
  - ARTHRALGIA [None]
  - BACK PAIN [None]
  - FACE OEDEMA [None]
  - PRURITUS [None]
  - PYREXIA [None]
  - RASH [None]
  - WHITE BLOOD CELL COUNT DECREASED [None]
